FAERS Safety Report 9616087 (Version 1)
Quarter: 2013Q4

REPORT INFORMATION
  Report Type: Spontaneous
  Country: IE (occurrence: IE)
  Receive Date: 20131011
  Receipt Date: 20131011
  Transmission Date: 20140711
  Serious: Yes (Other)
  Sender: FDA-Public Use
  Company Number: IE-SA-2013SA098551

PATIENT
  Age: 15 Year
  Sex: Female

DRUGS (7)
  1. CLAFORAN [Suspect]
     Indication: LOWER RESPIRATORY TRACT INFECTION
     Route: 042
     Dates: start: 20130915, end: 20130915
  2. HYDROCORTISONE [Concomitant]
     Indication: LOWER RESPIRATORY TRACT INFECTION
     Route: 042
     Dates: start: 20130915, end: 20130916
  3. CARVEDILOL [Concomitant]
     Indication: CARDIOMYOPATHY
     Route: 048
  4. PARACETAMOL [Concomitant]
     Indication: PYREXIA
     Dosage: EVERY 4 TO 6 HOURS
     Route: 048
  5. IPRATROPIUM BROMIDE [Concomitant]
     Indication: WHEEZING
     Dosage: EVERY 6 HOURS PRN
     Route: 055
     Dates: start: 20130915
  6. TERBUTALINE [Concomitant]
     Dosage: 10 MG EVERY 6 HOURS (PRN) 10 MG AS REQUIRED
     Route: 055
  7. CO-AMOXICLAV [Concomitant]
     Indication: LOWER RESPIRATORY TRACT INFECTION
     Route: 042
     Dates: start: 20130916

REACTIONS (2)
  - Rash erythematous [Recovered/Resolved]
  - Wheezing [Recovered/Resolved]
